FAERS Safety Report 8999424 (Version 1)
Quarter: 2013Q1

REPORT INFORMATION
  Report Type: Spontaneous
  Country: US (occurrence: US)
  Receive Date: 20130103
  Receipt Date: 20130103
  Transmission Date: 20140127
  Serious: No
  Sender: FDA-Public Use
  Company Number: US-ASTRAZENECA-2012SE95216

PATIENT
  Age: 59 Year
  Sex: Female
  Weight: 63.5 kg

DRUGS (4)
  1. NEXIUM [Suspect]
     Indication: PAIN
     Route: 048
     Dates: start: 20121218
  2. TRAZADONE [Concomitant]
     Indication: SOMNOLENCE
  3. LYRICA [Concomitant]
     Indication: PAIN
  4. ASTEPRO [Concomitant]
     Indication: HYPERSENSITIVITY

REACTIONS (3)
  - Somnolence [Unknown]
  - Dry mouth [Unknown]
  - Off label use [Unknown]
